FAERS Safety Report 6442396-5 (Version None)
Quarter: 2009Q4

REPORT INFORMATION
  Report Type: 
  Country: None (occurrence: None)
  Receive Date: 20091112
  Receipt Date: 20091026
  Transmission Date: 20100525
  Serious: Yes (Other)
  Sender: FDA-Public Use
  Company Number: DSA_41905_2009

PATIENT
  Age: 18 Year
  Sex: Female

DRUGS (1)
  1. CARDIZEM [Suspect]
     Dosage: 1.5 G ONCE ORAL
     Route: 048

REACTIONS (11)
  - ATRIOVENTRICULAR BLOCK [None]
  - ATRIOVENTRICULAR BLOCK SECOND DEGREE [None]
  - BLOOD GLUCOSE INCREASED [None]
  - EJECTION FRACTION DECREASED [None]
  - HYPOTENSION [None]
  - OVERDOSE [None]
  - PULMONARY OEDEMA [None]
  - RESPIRATORY RATE INCREASED [None]
  - SINUS BRADYCARDIA [None]
  - SUICIDE ATTEMPT [None]
  - VOMITING [None]
